FAERS Safety Report 4276590-9 (Version None)
Quarter: 2004Q1

REPORT INFORMATION
  Report Type: 
  Country: None (occurrence: None)
  Receive Date: 20040121
  Receipt Date: 20040114
  Transmission Date: 20041129
  Serious: Yes (Death)
  Sender: FDA-Public Use
  Company Number: WAES 0401GBR00100

PATIENT
  Age: 80 Year
  Sex: Female

DRUGS (3)
  1. [THERAPY UNSPECIFIED] [Concomitant]
  2. IRON (UNSPECIFIED) [Concomitant]
     Dates: start: 20030101
  3. VIOXX [Suspect]
     Indication: ABDOMINAL PAIN UPPER
     Route: 048
     Dates: start: 20020101

REACTIONS (2)
  - FAECES DISCOLOURED [None]
  - GASTROINTESTINAL PERFORATION [None]
